FAERS Safety Report 12563690 (Version 2)
Quarter: 2016Q3

REPORT INFORMATION
  Report Type: Spontaneous
  Country: JP (occurrence: JP)
  Receive Date: 20160716
  Receipt Date: 20160811
  Transmission Date: 20161109
  Serious: Yes (Hospitalization)
  Sender: FDA-Public Use
  Company Number: JP-ASTRAZENECA-2016SE75978

PATIENT
  Age: 15671 Day
  Sex: Female

DRUGS (19)
  1. FUROSEMIDE. [Concomitant]
     Active Substance: FUROSEMIDE
     Indication: OEDEMA
     Route: 042
     Dates: start: 20160426, end: 20160502
  2. FENTANYL CITRATE. [Concomitant]
     Active Substance: FENTANYL CITRATE
     Indication: PAIN
     Route: 041
     Dates: start: 20160427, end: 20160503
  3. MEROPEN [Suspect]
     Active Substance: MEROPENEM
     Indication: SEPSIS
     Route: 041
     Dates: start: 20160427, end: 20160428
  4. OMEPRAZOLE. [Concomitant]
     Active Substance: OMEPRAZOLE
  5. CERCINE [Concomitant]
     Active Substance: DIAZEPAM
     Indication: NEUROSIS
     Route: 041
     Dates: start: 20160427, end: 20160427
  6. PRECEDEX [Concomitant]
     Active Substance: DEXMEDETOMIDINE HYDROCHLORIDE
     Route: 041
  7. POTASSIUM CHLORIDE. [Concomitant]
     Active Substance: POTASSIUM CHLORIDE
  8. NOREPINEPHRINE [Concomitant]
     Active Substance: NOREPINEPHRINE\NOREPINEPHRINE BITARTRATE
     Indication: SEPTIC SHOCK
     Route: 041
     Dates: start: 20160424, end: 20160430
  9. DOBUPUM [Concomitant]
     Active Substance: DOBUTAMINE HYDROCHLORIDE
     Indication: SEPTIC SHOCK
     Route: 041
     Dates: start: 20160424, end: 20160503
  10. HANP [Concomitant]
     Active Substance: CARPERITIDE
     Indication: CARDIAC FAILURE ACUTE
     Route: 041
     Dates: start: 20160426, end: 20160427
  11. NEO-SYNESIN [Concomitant]
     Active Substance: PHENYLEPHRINE HYDROCHLORIDE
     Indication: SEPTIC SHOCK
     Route: 041
     Dates: start: 20160427, end: 20160427
  12. PALUX [Concomitant]
     Active Substance: ALPROSTADIL
  13. RECOMODULIN [Concomitant]
     Active Substance: THROMBOMODULIN ALFA
     Indication: DISSEMINATED INTRAVASCULAR COAGULATION
     Route: 041
     Dates: start: 20160427, end: 20160428
  14. L-CARTIN FF [Concomitant]
     Active Substance: LEVOCARNITINE
  15. NEO-MINOPHAGEN C [Concomitant]
     Active Substance: AMMONIUM GLYCYRRHIZATE
     Route: 042
  16. SAXIZON [Concomitant]
     Active Substance: HYDROCORTISONE SODIUM SUCCINATE
     Indication: SEPTIC SHOCK
     Route: 041
     Dates: start: 20160424, end: 20160505
  17. HEPARIN SODIUM. [Concomitant]
     Active Substance: HEPARIN SODIUM
     Indication: DEEP VEIN THROMBOSIS
     Route: 041
     Dates: start: 20160424, end: 20160505
  18. MEROPEN [Suspect]
     Active Substance: MEROPENEM
     Indication: SEPSIS
     Route: 041
     Dates: start: 20160424, end: 20160426
  19. ONOACT [Concomitant]
     Active Substance: LANDIOLOL HYDROCHLORIDE
     Indication: TACHYARRHYTHMIA
     Route: 041
     Dates: start: 20160427, end: 20160427

REACTIONS (7)
  - Liver disorder [Recovering/Resolving]
  - Rhabdomyolysis [Recovered/Resolved]
  - Fluid overload [Unknown]
  - Seizure [Recovered/Resolved]
  - Disseminated intravascular coagulation [Unknown]
  - Hepatic steatosis [Unknown]
  - Cholelithiasis [Unknown]

NARRATIVE: CASE EVENT DATE: 20160426
